FAERS Safety Report 9559738 (Version 1)
Quarter: 2013Q3

REPORT INFORMATION
  Report Type: Spontaneous
  Country: BR (occurrence: BR)
  Receive Date: 20130927
  Receipt Date: 20130927
  Transmission Date: 20140515
  Serious: Yes (Other)
  Sender: FDA-Public Use
  Company Number: BR-SANOFI-AVENTIS-2013SA093728

PATIENT
  Sex: Female

DRUGS (5)
  1. LANTUS [Suspect]
     Indication: PRODUCT USED FOR UNKNOWN INDICATION
     Route: 065
     Dates: start: 2009
  2. APROVEL [Concomitant]
  3. METHYLDOPA [Concomitant]
  4. DUPHASTON [Concomitant]
  5. DOCOSAHEXANOIC ACID/EICOSAPENTAENOIC ACID [Concomitant]

REACTIONS (4)
  - Haemorrhage [Unknown]
  - Exposure during pregnancy [Unknown]
  - Placental disorder [Unknown]
  - Premature delivery [Unknown]
